FAERS Safety Report 17001983 (Version 4)
Quarter: 2019Q4

REPORT INFORMATION
  Report Type: Spontaneous
  Country: RU (occurrence: RU)
  Receive Date: 20191106
  Receipt Date: 20191204
  Transmission Date: 20200122
  Serious: Yes (Other)
  Sender: FDA-Public Use
  Company Number: RU-ALLERGAN-1944602US

PATIENT
  Sex: Female

DRUGS (5)
  1. ESCITALOPRAM OXALATE - BP [Suspect]
     Active Substance: ESCITALOPRAM OXALATE
     Indication: OBSESSIVE-COMPULSIVE DISORDER
     Dosage: 10 MG, QD
     Route: 065
  2. FLUPENTIXOL [Suspect]
     Active Substance: FLUPENTIXOL
     Indication: OBSESSIVE-COMPULSIVE DISORDER
     Dosage: 1.5 MG, QD
     Route: 065
  3. AMITRIPTYLINE [Suspect]
     Active Substance: AMITRIPTYLINE
     Indication: OBSESSIVE-COMPULSIVE DISORDER
     Dosage: 75 MG, QD
     Route: 065
  4. QUETIAPINE. [Concomitant]
     Active Substance: QUETIAPINE
     Indication: PRODUCT USED FOR UNKNOWN INDICATION
     Dosage: 300 MG, QD
     Route: 065
  5. CARBAZEPINE [Concomitant]
     Active Substance: CARBAMAZEPINE
     Indication: PRODUCT USED FOR UNKNOWN INDICATION
     Dosage: 400 MG, QD
     Route: 065

REACTIONS (5)
  - Somnolence [Not Recovered/Not Resolved]
  - Urinary hesitation [Not Recovered/Not Resolved]
  - Visual impairment [Not Recovered/Not Resolved]
  - Intellectual disability [Not Recovered/Not Resolved]
  - Restlessness [Not Recovered/Not Resolved]
